FAERS Safety Report 15101275 (Version 1)
Quarter: 2018Q3

REPORT INFORMATION
  Report Type: Spontaneous
  Country: CA (occurrence: CA)
  Receive Date: 20180703
  Receipt Date: 20180703
  Transmission Date: 20181010
  Serious: Yes (Other)
  Sender: FDA-Public Use
  Company Number: CA-TEVA-2018-CA-918238

PATIENT
  Age: 23 Year
  Sex: Male

DRUGS (2)
  1. ATIVAN [Concomitant]
     Active Substance: LORAZEPAM
  2. DIPHENHYDRAMINE. [Suspect]
     Active Substance: DIPHENHYDRAMINE
     Indication: SLEEP DISORDER
     Dosage: FREQUENCY: ONCE
     Route: 065

REACTIONS (4)
  - Hallucination [Unknown]
  - Illusion [Unknown]
  - Hallucination, auditory [Unknown]
  - Hallucination, visual [Unknown]
